FAERS Safety Report 7197829-6 (Version None)
Quarter: 2010Q4

REPORT INFORMATION
  Report Type: 
  Country: None (occurrence: None)
  Receive Date: 20101214
  Receipt Date: 20101129
  Transmission Date: 20110411
  Serious: Yes (Other)
  Sender: FDA-Public Use
  Company Number: 2010S1000387

PATIENT
  Age: 80 Year
  Sex: Female

DRUGS (6)
  1. DARVOCET-N 100 [Suspect]
     Indication: ARTHRITIS
     Dosage: ;PRN; PO
     Route: 048
     Dates: start: 20070101, end: 20101101
  2. COROARONE [Concomitant]
  3. POTASSIUM [Concomitant]
  4. EXTRA STRENGTH TYLENOL [Concomitant]
  5. NEXIUM [Concomitant]
  6. ZESTORETIC [Concomitant]

REACTIONS (2)
  - ATRIAL FIBRILLATION [None]
  - INTRACARDIAC THROMBUS [None]
